FAERS Safety Report 8934442 (Version 3)
Quarter: 2013Q1

REPORT INFORMATION
  Report Type: Spontaneous
  Country: DK (occurrence: DE)
  Receive Date: 20121129
  Receipt Date: 20130226
  Transmission Date: 20140127
  Serious: Yes (Other)
  Sender: FDA-Public Use
  Company Number: DE-FRI-1000040677

PATIENT
  Age: 26 Year
  Sex: Male
  Weight: 100 kg

DRUGS (1)
  1. ESCITALOPRAM [Suspect]
     Dosage: 20 MG
     Route: 048

REACTIONS (1)
  - Solar dermatitis [Not Recovered/Not Resolved]
